FAERS Safety Report 20879067 (Version 1)
Quarter: 2022Q2

REPORT INFORMATION
  Report Type: Report from Study
  Country: US (occurrence: US)
  Receive Date: 20220526
  Receipt Date: 20220526
  Transmission Date: 20220721
  Serious: Yes (Death)
  Sender: FDA-Public Use
  Company Number: US-MYLANLABS-2022M1039052

PATIENT
  Age: 80 Year
  Sex: Male

DRUGS (4)
  1. DOXORUBICIN [Suspect]
     Active Substance: DOXORUBICIN
     Indication: Hodgkin^s disease
     Dosage: ON DAYS 1 AND 15 OF EACH 28-DAY CYCLE
     Route: 042
  2. VINBLASTINE [Suspect]
     Active Substance: VINBLASTINE
     Indication: Hodgkin^s disease
     Dosage: ON DAYS 1 AND 15 OF EACH 28-DAY CYCLE
     Route: 042
  3. DACARBAZINE [Suspect]
     Active Substance: DACARBAZINE
     Indication: Hodgkin^s disease
     Dosage: ON DAYS 1 AND 15 OF EACH 28-DAY CYCLE
     Route: 042
  4. BLEOMYCIN [Suspect]
     Active Substance: BLEOMYCIN SULFATE
     Indication: Hodgkin^s disease
     Dosage: 10 UNITS/M 2 ON DAYS 1 AND 15 OF EACH 28-DAY CYCLE
     Route: 042

REACTIONS (1)
  - Respiratory disorder [Fatal]
